FAERS Safety Report 12913659 (Version 1)
Quarter: 2016Q4

REPORT INFORMATION
  Report Type: Spontaneous
  Country: US (occurrence: US)
  Receive Date: 20161104
  Receipt Date: 20161104
  Transmission Date: 20170207
  Serious: No
  Sender: FDA-Public Use
  Company Number: US-ALLERGAN-1648369

PATIENT
  Sex: Female

DRUGS (1)
  1. BISMUTH SUBCITRATE K;METRO;TETRACYCLINE UNK [Suspect]
     Active Substance: BISMUTH SUBCITRATE POTASSIUM\METRONIDAZOLE\TETRACYCLINE HYDROCHLORIDE
     Indication: HELICOBACTER INFECTION
     Dosage: PER PROTOCOL, 1 DOSAGE, 10 DAY REGIMEN
     Route: 065
     Dates: start: 2016

REACTIONS (2)
  - Amnesia [Unknown]
  - Nausea [Unknown]

NARRATIVE: CASE EVENT DATE: 2016
